FAERS Safety Report 5633033-8 (Version None)
Quarter: 2008Q1

REPORT INFORMATION
  Report Type: 
  Country: None (occurrence: None)
  Receive Date: 20080221
  Receipt Date: 20080121
  Transmission Date: 20080703
  Serious: No
  Sender: FDA-Public Use
  Company Number: US-BAYER-200714189BWH

PATIENT
  Age: 75 Year
  Sex: Female

DRUGS (3)
  1. AVELOX [Suspect]
     Indication: DIVERTICULITIS
     Dosage: TOTAL DAILY DOSE: 400 MG  UNIT DOSE: 400 MG
     Route: 048
     Dates: start: 20071001
  2. FOSAMAX [Concomitant]
  3. VITAMINS [Concomitant]

REACTIONS (7)
  - CHEILITIS [None]
  - DYSGEUSIA [None]
  - GLOSSITIS [None]
  - GLOSSODYNIA [None]
  - LIP PAIN [None]
  - PARAESTHESIA ORAL [None]
  - TONGUE DISORDER [None]
